FAERS Safety Report 6585313-X (Version None)
Quarter: 2010Q1

REPORT INFORMATION
  Report Type: 
  Country: None (occurrence: None)
  Receive Date: 20100217
  Receipt Date: 20100208
  Transmission Date: 20100710
  Serious: Yes (Other)
  Sender: FDA-Public Use
  Company Number: US-JNJFOC-20100101584

PATIENT
  Sex: Female

DRUGS (2)
  1. TYLENOL ARTHRITIS PAIN ER [Suspect]
     Route: 048
  2. TYLENOL ARTHRITIS PAIN ER [Suspect]
     Indication: DRUG USE FOR UNKNOWN INDICATION
     Route: 048

REACTIONS (5)
  - BLOOD PRESSURE INCREASED [None]
  - DIARRHOEA [None]
  - DIZZINESS [None]
  - NAUSEA [None]
  - PRODUCT QUALITY ISSUE [None]
